FAERS Safety Report 4307430-7 (Version None)
Quarter: 2004Q1

REPORT INFORMATION
  Report Type: 
  Country: None (occurrence: None)
  Receive Date: 20040226
  Receipt Date: 20040212
  Transmission Date: 20041129
  Serious: Yes (Death, Life-Threatening)
  Sender: FDA-Public Use
  Company Number: 2004009242

PATIENT
  Age: 73 Year
  Sex: Female

DRUGS (13)
  1. ZOLOFT [Suspect]
     Indication: ILL-DEFINED DISORDER
     Dosage: 50 MG, ORAL
     Route: 048
  2. FLUCONAZOLE [Suspect]
     Indication: ILL-DEFINED DISORDER
     Dosage: ORAL
     Route: 048
  3. REPAGLINIDE (REPAGLINIDE) [Suspect]
     Indication: ILL-DEFINED DISORDER
  4. ALIMEMAZINE (ALIMEMAZINE) [Suspect]
     Indication: ILL-DEFINED DISORDER
     Dosage: ORAL
     Route: 048
  5. METFORMINE (METFORMIN HYDROCHLORIDE) [Suspect]
     Indication: ILL-DEFINED DISORDER
     Dosage: ORAL
     Route: 048
  6. CLOZAPINE [Suspect]
     Indication: ILL-DEFINED DISORDER
     Dosage: ORAL
     Route: 048
  7. HEPTAMINOL (HEPTAMINOL) [Concomitant]
  8. DOMPERIDONE (DOMPERIDONE) [Concomitant]
  9. ALUMINUM PHOSPHATE (ALUMINIUM PHOSPHATE) [Concomitant]
  10. SUCRALFATE [Concomitant]
  11. MACROGOL 4000 (MACROGOL) [Concomitant]
  12. FERROUS SULFATE TAB [Concomitant]
  13. ALGINATE, BICARBONATE, ALUMINUM HYDROXIDE [Concomitant]

REACTIONS (7)
  - ANAEMIA [None]
  - DIABETES MELLITUS NON-INSULIN-DEPENDENT [None]
  - GASTRIC CANCER [None]
  - HALLUCINATION [None]
  - LUNG INFECTION [None]
  - PSYCHOTIC DISORDER [None]
  - THROMBOCYTOPENIA [None]
